FAERS Safety Report 13993394 (Version 1)
Quarter: 2017Q3

REPORT INFORMATION
  Report Type: Spontaneous
  Country: US (occurrence: US)
  Receive Date: 20170920
  Receipt Date: 20170920
  Transmission Date: 20171128
  Serious: Yes (Other)
  Sender: FDA-Public Use
  Company Number: US-JNJFOC-20170915150

PATIENT

DRUGS (1)
  1. METHYLPHENIDATE HYDROCHLORIDE. [Suspect]
     Active Substance: METHYLPHENIDATE HYDROCHLORIDE
     Indication: ATTENTION DEFICIT/HYPERACTIVITY DISORDER
     Route: 065

REACTIONS (19)
  - Blood pressure diastolic increased [Unknown]
  - Heart rate abnormal [Unknown]
  - Dry eye [Unknown]
  - Nasal dryness [Unknown]
  - Decreased appetite [Unknown]
  - Headache [Unknown]
  - Pain [Unknown]
  - Electrocardiogram change [Unknown]
  - Weight decreased [Unknown]
  - Electrocardiogram QT prolonged [Unknown]
  - Tension [Unknown]
  - Nausea [Unknown]
  - Agitation [Unknown]
  - Anxiety [Unknown]
  - Peripheral coldness [Unknown]
  - Blood pressure systolic increased [Unknown]
  - Urinary tract disorder [Unknown]
  - Dry mouth [Unknown]
  - Insomnia [Unknown]
